FAERS Safety Report 4859826-2 (Version None)
Quarter: 2005Q4

REPORT INFORMATION
  Report Type: 
  Country: None (occurrence: None)
  Receive Date: 20051219
  Receipt Date: 20051213
  Transmission Date: 20060501
  Serious: Yes (Other)
  Sender: FDA-Public Use
  Company Number: GB-GLAXOSMITHKLINE-B0403581A

PATIENT
  Age: 40 Year
  Sex: Female
  Weight: 55 kg

DRUGS (3)
  1. AMOXICILLIN [Suspect]
     Indication: TOOTH INFECTION
     Dosage: 250MG UNKNOWN
     Route: 048
     Dates: start: 20051108, end: 20051111
  2. METRONIDAZOLE [Suspect]
     Indication: TOOTH INFECTION
     Dosage: 200MG UNKNOWN
     Route: 048
     Dates: start: 20051108, end: 20051111
  3. SERTRALINE HCL [Concomitant]
     Indication: DEPRESSION
     Dosage: 100MG PER DAY
     Route: 048
     Dates: start: 20000101

REACTIONS (3)
  - ABDOMINAL PAIN [None]
  - DIARRHOEA HAEMORRHAGIC [None]
  - VOMITING [None]
